FAERS Safety Report 6753380-6 (Version None)
Quarter: 2010Q2

REPORT INFORMATION
  Report Type: 
  Country: None (occurrence: None)
  Receive Date: 20100520
  Receipt Date: 20090429
  Transmission Date: 20101027
  Serious: Yes (Other)
  Sender: FDA-Public Use
  Company Number: 2009206018

PATIENT
  Age: 64 Year
  Sex: Female
  Weight: 73 kg

DRUGS (7)
  1. PROVERA [Suspect]
     Indication: MENOPAUSE
     Dosage: ORAL
     Route: 048
     Dates: start: 19911101, end: 20020101
  2. MEDROXYPROGESTERONE [Suspect]
     Indication: MENOPAUSE
     Dosage: ORAL
     Route: 048
     Dates: start: 20010401, end: 20020801
  3. PREMARIN [Suspect]
     Indication: MENOPAUSE
  4. ESTRADIOL [Suspect]
     Indication: MENOPAUSE
     Dates: start: 20010501, end: 20021201
  5. ESTRACE [Suspect]
     Indication: VAGINAL HAEMORRHAGE
     Dates: start: 19910601, end: 20020301
  6. PROMETRIUM [Suspect]
     Indication: HOT FLUSH
     Dates: start: 20020901, end: 20021201
  7. PROMETRIUM [Suspect]
     Indication: POLYMENORRHOEA
     Dates: start: 20020901, end: 20021201

REACTIONS (1)
  - BREAST CANCER FEMALE [None]
